FAERS Safety Report 18213304 (Version 2)
Quarter: 2020Q4

REPORT INFORMATION
  Report Type: Spontaneous
  Country: US (occurrence: US)
  Receive Date: 20200831
  Receipt Date: 20201030
  Transmission Date: 20210113
  Serious: Yes (Other)
  Sender: FDA-Public Use
  Company Number: US-BAYER-2020-182316

PATIENT
  Age: 17 Year
  Sex: Female
  Weight: 102.04 kg

DRUGS (1)
  1. SKYLA [Suspect]
     Active Substance: LEVONORGESTREL
     Indication: CONTRACEPTION
     Dosage: 14 ?G PER DAY, CONTINUOUSLY
     Route: 015
     Dates: start: 20191011, end: 20200825

REACTIONS (6)
  - Dysfunctional uterine bleeding [None]
  - Vaginal infection [None]
  - Menstrual disorder [None]
  - Anxiety disorder [None]
  - Device dislocation [Recovered/Resolved]
  - Urinary tract infection [None]

NARRATIVE: CASE EVENT DATE: 20200825
